FAERS Safety Report 13738337 (Version 1)
Quarter: 2017Q3

REPORT INFORMATION
  Report Type: Spontaneous
  Country: US (occurrence: US)
  Receive Date: 20170710
  Receipt Date: 20170710
  Transmission Date: 20171127
  Serious: Yes (Other)
  Sender: FDA-Public Use
  Company Number: US-ELI_LILLY_AND_COMPANY-US201608003908

PATIENT
  Sex: Female

DRUGS (1)
  1. CYMBALTA [Suspect]
     Active Substance: DULOXETINE HYDROCHLORIDE
     Indication: PRODUCT USED FOR UNKNOWN INDICATION
     Dosage: UNK, UNKNOWN
     Route: 065
     Dates: end: 2014

REACTIONS (13)
  - Diarrhoea [Unknown]
  - Hydronephrosis [Unknown]
  - Nephrolithiasis [Unknown]
  - Muscle spasms [Unknown]
  - Paraesthesia [Unknown]
  - Eye pain [Unknown]
  - Dizziness [Unknown]
  - Loss of consciousness [Unknown]
  - Headache [Unknown]
  - Nausea [Unknown]
  - Drug withdrawal syndrome [Unknown]
  - Neck pain [Unknown]
  - Vomiting [Unknown]
